FAERS Safety Report 7329300-2 (Version None)
Quarter: 2011Q1

REPORT INFORMATION
  Report Type: 
  Country: None (occurrence: None)
  Receive Date: 20110303
  Receipt Date: 20110225
  Transmission Date: 20110831
  Serious: Yes (Other)
  Sender: FDA-Public Use
  Company Number: B0703009A

PATIENT

DRUGS (2)
  1. THALIDOMIDE [Concomitant]
     Route: 048
  2. ALKERAN [Suspect]
     Dosage: 50MG UNKNOWN
     Route: 042
     Dates: end: 20101201

REACTIONS (2)
  - ANAL FISTULA [None]
  - BONE MARROW FAILURE [None]
